FAERS Safety Report 26021397 (Version 1)
Quarter: 2025Q4

REPORT INFORMATION
  Report Type: Spontaneous
  Country: GB (occurrence: GB)
  Receive Date: 20251110
  Receipt Date: 20251110
  Transmission Date: 20260117
  Serious: Yes (Other)
  Sender: MYLAN
  Company Number: GB-MHRA-TPP23647622C32938527YC1762174029753

PATIENT
  Age: 60 Year
  Sex: Female
  Weight: 79 kg

DRUGS (20)
  1. AMLODIPINE [Suspect]
     Active Substance: AMLODIPINE BESYLATE
     Indication: Ill-defined disorder
     Dosage: 1 DOSAGE FORM, PM (TAKE ONE IN THE EVENING)
     Dates: start: 20251008
  2. AMLODIPINE [Suspect]
     Active Substance: AMLODIPINE BESYLATE
     Dosage: 1 DOSAGE FORM, PM (TAKE ONE IN THE EVENING)
     Route: 065
     Dates: start: 20251008
  3. AMLODIPINE [Suspect]
     Active Substance: AMLODIPINE BESYLATE
     Dosage: 1 DOSAGE FORM, PM (TAKE ONE IN THE EVENING)
     Route: 065
     Dates: start: 20251008
  4. AMLODIPINE [Suspect]
     Active Substance: AMLODIPINE BESYLATE
     Dosage: 1 DOSAGE FORM, PM (TAKE ONE IN THE EVENING)
     Dates: start: 20251008
  5. AMITRIPTYLINE HYDROCHLORIDE [Concomitant]
     Active Substance: AMITRIPTYLINE HYDROCHLORIDE
     Indication: Ill-defined disorder
     Dosage: UNK UNK, PM (ONE TO TWO TO BE TAKEN AT NIGHT)
     Dates: start: 20230206, end: 20251027
  6. AMITRIPTYLINE HYDROCHLORIDE [Concomitant]
     Active Substance: AMITRIPTYLINE HYDROCHLORIDE
     Dosage: UNK UNK, PM (ONE TO TWO TO BE TAKEN AT NIGHT)
     Route: 065
     Dates: start: 20230206, end: 20251027
  7. AMITRIPTYLINE HYDROCHLORIDE [Concomitant]
     Active Substance: AMITRIPTYLINE HYDROCHLORIDE
     Dosage: UNK UNK, PM (ONE TO TWO TO BE TAKEN AT NIGHT)
     Route: 065
     Dates: start: 20230206, end: 20251027
  8. AMITRIPTYLINE HYDROCHLORIDE [Concomitant]
     Active Substance: AMITRIPTYLINE HYDROCHLORIDE
     Dosage: UNK UNK, PM (ONE TO TWO TO BE TAKEN AT NIGHT)
     Dates: start: 20230206, end: 20251027
  9. LANSOPRAZOLE [Concomitant]
     Active Substance: LANSOPRAZOLE
     Indication: Ill-defined disorder
     Dosage: 1 DOSAGE FORM, AM (TAKE ONE IN MORNING 30 TO 60 MINS BEFORE FOOD W...)
     Dates: start: 20240605, end: 20251027
  10. LANSOPRAZOLE [Concomitant]
     Active Substance: LANSOPRAZOLE
     Dosage: 1 DOSAGE FORM, AM (TAKE ONE IN MORNING 30 TO 60 MINS BEFORE FOOD W...)
     Route: 065
     Dates: start: 20240605, end: 20251027
  11. LANSOPRAZOLE [Concomitant]
     Active Substance: LANSOPRAZOLE
     Dosage: 1 DOSAGE FORM, AM (TAKE ONE IN MORNING 30 TO 60 MINS BEFORE FOOD W...)
     Route: 065
     Dates: start: 20240605, end: 20251027
  12. LANSOPRAZOLE [Concomitant]
     Active Substance: LANSOPRAZOLE
     Dosage: 1 DOSAGE FORM, AM (TAKE ONE IN MORNING 30 TO 60 MINS BEFORE FOOD W...)
     Dates: start: 20240605, end: 20251027
  13. TERBINAFINE [Concomitant]
     Active Substance: TERBINAFINE
     Indication: Ill-defined disorder
     Dosage: 1 DOSAGE FORM, QD (TAKE ONE DAILY)
     Dates: start: 20250912
  14. TERBINAFINE [Concomitant]
     Active Substance: TERBINAFINE
     Dosage: 1 DOSAGE FORM, QD (TAKE ONE DAILY)
     Route: 065
     Dates: start: 20250912
  15. TERBINAFINE [Concomitant]
     Active Substance: TERBINAFINE
     Dosage: 1 DOSAGE FORM, QD (TAKE ONE DAILY)
     Route: 065
     Dates: start: 20250912
  16. TERBINAFINE [Concomitant]
     Active Substance: TERBINAFINE
     Dosage: 1 DOSAGE FORM, QD (TAKE ONE DAILY)
     Dates: start: 20250912
  17. RAMIPRIL [Concomitant]
     Active Substance: RAMIPRIL
     Indication: Ill-defined disorder
     Dosage: 1 DOSAGE FORM, QD (TAKE ONE DAILY)
     Dates: start: 20251027
  18. RAMIPRIL [Concomitant]
     Active Substance: RAMIPRIL
     Dosage: 1 DOSAGE FORM, QD (TAKE ONE DAILY)
     Route: 065
     Dates: start: 20251027
  19. RAMIPRIL [Concomitant]
     Active Substance: RAMIPRIL
     Dosage: 1 DOSAGE FORM, QD (TAKE ONE DAILY)
     Route: 065
     Dates: start: 20251027
  20. RAMIPRIL [Concomitant]
     Active Substance: RAMIPRIL
     Dosage: 1 DOSAGE FORM, QD (TAKE ONE DAILY)
     Dates: start: 20251027

REACTIONS (3)
  - Lip swelling [Unknown]
  - Urticaria [Recovered/Resolved]
  - Rash [Recovered/Resolved]

NARRATIVE: CASE EVENT DATE: 20251103
